FAERS Safety Report 24324747 (Version 1)
Quarter: 2024Q3

REPORT INFORMATION
  Report Type: Spontaneous
  Country: US (occurrence: US)
  Receive Date: 20240916
  Receipt Date: 20240916
  Transmission Date: 20241017
  Serious: No
  Sender: MYLAN
  Company Number: US-MYLANLABS-2024M1082801

PATIENT
  Sex: Female

DRUGS (1)
  1. ZOLOFT [Suspect]
     Active Substance: SERTRALINE HYDROCHLORIDE
     Indication: Product used for unknown indication
     Dosage: UNK
     Route: 065

REACTIONS (10)
  - Crying [Unknown]
  - Frustration tolerance decreased [Unknown]
  - Impatience [Unknown]
  - Depressed mood [Unknown]
  - Depression [Unknown]
  - Irritability [Unknown]
  - Nervousness [Unknown]
  - Disturbance in attention [Unknown]
  - Anxiety [Unknown]
  - Blood pressure increased [Unknown]
